FAERS Safety Report 18495503 (Version 1)
Quarter: 2020Q4

REPORT INFORMATION
  Report Type: Spontaneous
  Country: US (occurrence: US)
  Receive Date: 20201112
  Receipt Date: 20201112
  Transmission Date: 20210114
  Serious: No
  Sender: FDA-Public Use
  Company Number: None

PATIENT
  Age: 71 Year
  Sex: Female
  Weight: 87.75 kg

DRUGS (5)
  1. MYRBETRIQ [Suspect]
     Active Substance: MIRABEGRON
     Indication: PRODUCT USED FOR UNKNOWN INDICATION
     Dosage: ?          QUANTITY:1 CAPSULE(S);?
     Route: 048
     Dates: start: 20200611, end: 20200924
  2. GLISIDE COZAR [Concomitant]
  3. HYDROCHLOROTHIAZ [Concomitant]
  4. LEVOTHYROXINE. [Concomitant]
     Active Substance: LEVOTHYROXINE
  5. B-12, D3 [Concomitant]

REACTIONS (2)
  - Muscle spasms [None]
  - Diarrhoea [None]

NARRATIVE: CASE EVENT DATE: 20200707
